FAERS Safety Report 9902502 (Version 2)
Quarter: 2014Q2

REPORT INFORMATION
  Report Type: Spontaneous
  Country: AT (occurrence: AT)
  Receive Date: 20140217
  Receipt Date: 20140522
  Transmission Date: 20141212
  Serious: Yes (Hospitalization)
  Sender: FDA-Public Use
  Company Number: AT-JNJFOC-20140207086

PATIENT
  Age: 64 Year
  Sex: Female
  Weight: 60 kg

DRUGS (6)
  1. XARELTO [Suspect]
     Indication: CARDIOVERSION
     Route: 048
     Dates: start: 20131025
  2. XARELTO [Suspect]
     Indication: CEREBROVASCULAR ACCIDENT PROPHYLAXIS
     Route: 048
     Dates: start: 20131025
  3. XARELTO [Suspect]
     Indication: ATRIAL FIBRILLATION
     Route: 048
     Dates: start: 20131025
  4. SPIROBENE [Concomitant]
     Indication: DIURETIC THERAPY
     Route: 065
  5. THIAMAZOL [Concomitant]
     Indication: HYPERTHYROIDISM
     Route: 065
     Dates: start: 20131025
  6. SELOKEN (METOPROLOL TARTRATE) [Concomitant]
     Indication: PRODUCT USED FOR UNKNOWN INDICATION
     Route: 065

REACTIONS (3)
  - Mesenteric arterial occlusion [Recovered/Resolved with Sequelae]
  - Mesenteric artery embolism [Recovered/Resolved with Sequelae]
  - Intestinal ischaemia [Recovered/Resolved with Sequelae]
